FAERS Safety Report 6174231-7 (Version None)
Quarter: 2009Q2

REPORT INFORMATION
  Report Type: 
  Country: None (occurrence: None)
  Receive Date: 20090430
  Receipt Date: 20080602
  Transmission Date: 20091009
  Serious: No
  Sender: FDA-Public Use
  Company Number: US-ASTRAZENECA-2008UW05671

PATIENT
  Age: 60 Year
  Sex: Female
  Weight: 111.6 kg

DRUGS (10)
  1. NEXIUM [Suspect]
     Route: 048
  2. CRESTOR [Suspect]
     Indication: BLOOD CHOLESTEROL INCREASED
     Route: 048
  3. EFFEXOR [Concomitant]
  4. ASCORBITE [Concomitant]
  5. IMDUR [Concomitant]
  6. DIOVAN HCT [Concomitant]
  7. RISPERDAL [Concomitant]
  8. ASPIRIN [Concomitant]
  9. MIRAPEX [Concomitant]
  10. MULTI-VITAMIN [Concomitant]

REACTIONS (5)
  - ABDOMINAL PAIN [None]
  - DRY MOUTH [None]
  - INCREASED UPPER AIRWAY SECRETION [None]
  - PRODUCTIVE COUGH [None]
  - TRIGGER FINGER [None]
